FAERS Safety Report 23206243 (Version 1)
Quarter: 2023Q4

REPORT INFORMATION
  Report Type: Other
  Country: JP (occurrence: JP)
  Receive Date: 20231120
  Receipt Date: 20231120
  Transmission Date: 20240109
  Serious: Yes (Other)
  Sender: FDA-Public Use
  Company Number: JP-CHUGAI-2023041142

PATIENT
  Age: 51 Year
  Sex: Female

DRUGS (3)
  1. ACTEMRA [Suspect]
     Active Substance: TOCILIZUMAB
     Indication: Castleman^s disease
     Dosage: UNK
     Route: 065
  2. CYCLOSPORINE [Concomitant]
     Active Substance: CYCLOSPORINE
     Indication: Castleman^s disease
     Dosage: UNK
  3. SARILUMAB [Concomitant]
     Active Substance: SARILUMAB
     Indication: Castleman^s disease
     Dosage: UNK

REACTIONS (3)
  - Drug-induced liver injury [Recovering/Resolving]
  - Rectal ulcer [Unknown]
  - Off label use [Unknown]
